FAERS Safety Report 6643118-5 (Version None)
Quarter: 2010Q1

REPORT INFORMATION
  Report Type: 
  Country: None (occurrence: None)
  Receive Date: 20100319
  Receipt Date: 20100308
  Transmission Date: 20100710
  Serious: Yes (Other)
  Sender: FDA-Public Use
  Company Number: PHEH2010US02678

PATIENT
  Sex: Female

DRUGS (1)
  1. MIACALCIN [Suspect]
     Dosage: UNK

REACTIONS (4)
  - FACIAL BONES FRACTURE [None]
  - LOSS OF CONSCIOUSNESS [None]
  - UPPER LIMB FRACTURE [None]
  - URINARY TRACT INFECTION [None]
